FAERS Safety Report 6787505-3 (Version None)
Quarter: 2010Q2

REPORT INFORMATION
  Report Type: 
  Country: None (occurrence: None)
  Receive Date: 20100623
  Receipt Date: 20080408
  Transmission Date: 20101027
  Serious: No
  Sender: FDA-Public Use
  Company Number: US-PFIZER INC-2007018001

PATIENT
  Age: 64 Year
  Sex: Male

DRUGS (2)
  1. XALATAN [Suspect]
     Indication: NORMAL TENSION GLAUCOMA
     Dates: start: 20070307, end: 20070501
  2. TEARS NATURALE [Suspect]

REACTIONS (3)
  - DRY EYE [None]
  - EYE PRURITUS [None]
  - LACRIMATION INCREASED [None]
